FAERS Safety Report 7197408-0 (Version None)
Quarter: 2010Q4

REPORT INFORMATION
  Report Type: 
  Country: None (occurrence: None)
  Receive Date: 20101210
  Receipt Date: 20101123
  Transmission Date: 20110411
  Serious: Yes (Hospitalization)
  Sender: FDA-Public Use
  Company Number: B0686980A

PATIENT
  Age: 46 Year
  Sex: Male

DRUGS (2)
  1. COMBIVIR [Suspect]
     Indication: HIV INFECTION
     Dates: start: 20050101
  2. NEVIRAPINE [Suspect]
     Indication: HIV INFECTION
     Dates: start: 20050101

REACTIONS (26)
  - ASPARTATE AMINOTRANSFERASE INCREASED [None]
  - BLOOD AMYLASE INCREASED [None]
  - BLOOD CREATINE PHOSPHOKINASE INCREASED [None]
  - BLOOD PHOSPHORUS DECREASED [None]
  - BLOOD POTASSIUM DECREASED [None]
  - BLOOD PRESSURE DECREASED [None]
  - BLOOD SODIUM INCREASED [None]
  - CSF GLUCOSE INCREASED [None]
  - DIABETIC HYPEROSMOLAR COMA [None]
  - DIZZINESS [None]
  - ENCEPHALITIS HERPES [None]
  - FALL [None]
  - HAEMODIALYSIS [None]
  - HAEMODYNAMIC INSTABILITY [None]
  - HAEMOGLOBIN DECREASED [None]
  - HEART RATE INCREASED [None]
  - INCOHERENT [None]
  - LACTIC ACIDOSIS [None]
  - MUSCULAR WEAKNESS [None]
  - ORAL CANDIDIASIS [None]
  - PLATELET COUNT DECREASED [None]
  - RENAL FAILURE ACUTE [None]
  - SEPSIS [None]
  - TACHYPNOEA [None]
  - URINARY INCONTINENCE [None]
  - UROSEPSIS [None]
